FAERS Safety Report 16259835 (Version 1)
Quarter: 2019Q2

REPORT INFORMATION
  Report Type: Spontaneous
  Country: US (occurrence: US)
  Receive Date: 20190327
  Receipt Date: 20190327
  Transmission Date: 20190711
  Serious: Yes (Other)
  Sender: FDA-Public Use
  Company Number: None

PATIENT
  Age: 75 Year
  Sex: Female
  Weight: 86.18 kg

DRUGS (1)
  1. LOSARTAN POTASSIUM 50MG [Suspect]
     Active Substance: LOSARTAN POTASSIUM
     Dosage: ?          OTHER DOSE: ONE TABLET;?
     Route: 048
     Dates: start: 201903, end: 20190327

REACTIONS (7)
  - Anger [None]
  - Product quality issue [None]
  - Formication [None]
  - Balance disorder [None]
  - Loss of personal independence in daily activities [None]
  - Stress [None]
  - Discomfort [None]

NARRATIVE: CASE EVENT DATE: 20190303
